FAERS Safety Report 20180555 (Version 1)
Quarter: 2021Q4

REPORT INFORMATION
  Report Type: Spontaneous
  Country: US (occurrence: US)
  Receive Date: 20211214
  Receipt Date: 20211214
  Transmission Date: 20220303
  Serious: No
  Sender: FDA-Public Use
  Company Number: US-Global Blood Therapeutics Inc-US-GBT-21-03242

PATIENT
  Sex: Female

DRUGS (2)
  1. OXBRYTA [Suspect]
     Active Substance: VOXELOTOR
     Indication: Sickle cell disease
     Route: 048
     Dates: start: 20210720, end: 20210919
  2. OXBRYTA [Suspect]
     Active Substance: VOXELOTOR
     Dosage: 1-2 TABLETS DAILY DEPENDING ON HOW SHE FEELS
     Route: 048
     Dates: start: 20210920

REACTIONS (5)
  - Sickle cell anaemia with crisis [Unknown]
  - Abdominal discomfort [Unknown]
  - Abdominal pain upper [Unknown]
  - Diarrhoea [Unknown]
  - Headache [Unknown]

NARRATIVE: CASE EVENT DATE: 20210101
